FAERS Safety Report 9186700 (Version 1)
Quarter: 2012Q4

REPORT INFORMATION
  Report Type: 
  Country: US (occurrence: US)
  Receive Date: 20121102
  Receipt Date: 20121102
  Transmission Date: 20130627
  Serious: No
  Sender: FDA-Public Use
  Company Number: US-ASTELLAS-2012US006725

PATIENT
  Age: 66 Year
  Sex: Female

DRUGS (3)
  1. MYCAMINE [Suspect]
     Indication: NEUTROPENIA
     Dosage: UNK
     Route: 065
     Dates: start: 20120726
  2. MYCAMINE [Suspect]
     Indication: LUNG NEOPLASM MALIGNANT
  3. MYCAMINE [Suspect]
     Indication: SEPSIS

REACTIONS (2)
  - Off label use [Unknown]
  - Pyrexia [Unknown]
